FAERS Safety Report 6184360-X (Version None)
Quarter: 2009Q2

REPORT INFORMATION
  Report Type: 
  Country: None (occurrence: None)
  Receive Date: 20090508
  Receipt Date: 20090428
  Transmission Date: 20091009
  Serious: Yes (Disabling)
  Sender: FDA-Public Use
  Company Number: A0781371A

PATIENT
  Sex: Male
  Weight: 72 kg

DRUGS (5)
  1. ELTROMBOPAG [Suspect]
     Indication: THROMBOCYTOPENIA
     Dosage: 25MG PER DAY
     Route: 048
     Dates: start: 20090227, end: 20090313
  2. ELTROMBOPAG [Suspect]
     Dosage: 25MG PER DAY
     Route: 048
     Dates: start: 20090313
  3. PEGASYS [Suspect]
     Dosage: 180MCG WEEKLY
     Route: 058
     Dates: start: 20090313
  4. COPEGUS [Suspect]
     Route: 048
     Dates: start: 20090313
  5. ACETAMINOPHEN [Concomitant]
     Dosage: 1300MG AS REQUIRED
     Route: 048
     Dates: start: 20090417, end: 20090424

REACTIONS (1)
  - DEAFNESS [None]
